FAERS Safety Report 6862147-X (Version None)
Quarter: 2010Q3

REPORT INFORMATION
  Report Type: 
  Country: None (occurrence: None)
  Receive Date: 20100721
  Receipt Date: 20100707
  Transmission Date: 20110219
  Serious: Yes (Other)
  Sender: FDA-Public Use
  Company Number: PHHY2010JP44786

PATIENT
  Age: 74 Year
  Sex: Male

DRUGS (5)
  1. DIOVAN [Suspect]
     Indication: HYPERTENSION
     Dosage: 80 MG, QD
     Route: 048
     Dates: start: 20090710, end: 20100507
  2. DIOVAN HCT [Suspect]
     Indication: HYPERTENSION
     Dosage: 80/12.5 MG/DAY
     Route: 048
     Dates: start: 20100507, end: 20100524
  3. NORVASC [Concomitant]
     Dosage: 5 MG
     Route: 048
     Dates: start: 20031121
  4. LIPITOR [Concomitant]
     Dosage: 5 MG
     Route: 048
     Dates: start: 20090612
  5. ALLOPURINOL [Concomitant]
     Dosage: UNK
     Route: 048
     Dates: start: 20091222

REACTIONS (3)
  - BRONCHITIS [None]
  - COUGH [None]
  - INTERSTITIAL LUNG DISEASE [None]
